FAERS Safety Report 17338944 (Version 1)
Quarter: 2020Q1

REPORT INFORMATION
  Report Type: Spontaneous
  Country: CA (occurrence: CA)
  Receive Date: 20200129
  Receipt Date: 20200129
  Transmission Date: 20200409
  Serious: Yes (Other)
  Sender: FDA-Public Use
  Company Number: CA-PFIZER INC-2020034846

PATIENT
  Age: 71 Year
  Sex: Female

DRUGS (13)
  1. ERGOCALCIFEROL. [Concomitant]
     Active Substance: ERGOCALCIFEROL
     Dosage: UNK
  2. ARAVA [Suspect]
     Active Substance: LEFLUNOMIDE
     Dosage: 20 MG, 1X/DAY
     Route: 048
  3. ORENCIA [Suspect]
     Active Substance: ABATACEPT
     Dosage: 500 MG, UNK
     Route: 042
  4. ENBREL [Suspect]
     Active Substance: ETANERCEPT
     Indication: RHEUMATOID ARTHRITIS
     Dosage: 50 MG, WEEKLY (1 EVERY 1 WEEKS)
  5. METHOTREXATE SODIUM. [Suspect]
     Active Substance: METHOTREXATE SODIUM
     Dosage: 15 MG, WEEKLY (1 EVERY 1 WEEKS)
     Route: 048
  6. COVERSYL [PERINDOPRIL ERBUMINE] [Concomitant]
     Active Substance: PERINDOPRIL ERBUMINE
     Dosage: UNK
  7. LEUCOVORIN CALCIUM. [Concomitant]
     Active Substance: LEUCOVORIN CALCIUM
     Dosage: UNK
  8. SULFASALAZINE. [Suspect]
     Active Substance: SULFASALAZINE
     Indication: RHEUMATOID ARTHRITIS
     Dosage: UNK
     Route: 048
  9. HUMIRA [Suspect]
     Active Substance: ADALIMUMAB
     Dosage: 40 MG, 1 EVERY 2 WEEKS
     Route: 058
  10. METHOTREXATE SODIUM. [Suspect]
     Active Substance: METHOTREXATE SODIUM
     Dosage: 17.5 MG, UNK
     Route: 048
  11. PLAQUENIL [Suspect]
     Active Substance: HYDROXYCHLOROQUINE SULFATE
     Dosage: UNK
  12. METHOTREXATE SODIUM. [Suspect]
     Active Substance: METHOTREXATE SODIUM
     Indication: RHEUMATOID ARTHRITIS
     Dosage: 25 MG, UNK
     Route: 048
  13. CIMZIA [Suspect]
     Active Substance: CERTOLIZUMAB PEGOL
     Dosage: 200 MG, 1 EVERY 2 WEEKS
     Route: 058

REACTIONS (16)
  - Affect lability [Unknown]
  - Anxiety [Unknown]
  - Drug ineffective [Unknown]
  - Headache [Unknown]
  - Hyperhidrosis [Unknown]
  - Nausea [Unknown]
  - Drug intolerance [Unknown]
  - Contraindicated product administered [Unknown]
  - Depression [Unknown]
  - Limb discomfort [Unknown]
  - Blood pressure fluctuation [Unknown]
  - Joint swelling [Unknown]
  - Night sweats [Unknown]
  - Finger deformity [Unknown]
  - Osteoarthritis [Unknown]
  - Palpitations [Unknown]
